FAERS Safety Report 6913362-8 (Version None)
Quarter: 2010Q3

REPORT INFORMATION
  Report Type: 
  Country: None (occurrence: None)
  Receive Date: 20100723
  Receipt Date: 20100709
  Transmission Date: 20110219
  Serious: Yes (Death)
  Sender: FDA-Public Use
  Company Number: 20100321

PATIENT
  Age: 55 Year
  Sex: Male

DRUGS (2)
  1. ATROPINE SULFATE [Suspect]
     Indication: STRESS ECHOCARDIOGRAM
     Dosage: 0.5 MG X2 DOSES
  2. DOBUTAMINE INJECTION, USP (2075-10) 12.5 MG/ML [Suspect]
     Indication: STRESS ECHOCARDIOGRAM
     Dosage: 50 MCG/KG/MINUTE

REACTIONS (10)
  - ABDOMINAL DISTENSION [None]
  - ANEURYSM RUPTURED [None]
  - BLOOD PRESSURE DECREASED [None]
  - BLOOD PRESSURE INCREASED [None]
  - HEART RATE DECREASED [None]
  - HEART RATE INCREASED [None]
  - LOSS OF CONSCIOUSNESS [None]
  - PERITONEAL HAEMORRHAGE [None]
  - RETROPERITONEAL HAEMATOMA [None]
  - SPLENIC ARTERY ANEURYSM [None]
